FAERS Safety Report 5176025-8 (Version None)
Quarter: 2006Q4

REPORT INFORMATION
  Report Type: 
  Country: None (occurrence: None)
  Receive Date: 20061215
  Receipt Date: 20061207
  Transmission Date: 20070319
  Serious: Yes (Other)
  Sender: FDA-Public Use
  Company Number: JP-ROCHE-474158

PATIENT
  Age: 44 Year
  Sex: Male

DRUGS (1)
  1. HORIZON [Suspect]
     Indication: DRUG USE FOR UNKNOWN INDICATION
     Route: 048
     Dates: start: 20060826

REACTIONS (1)
  - CONVULSION [None]
